FAERS Safety Report 4846501-3 (Version None)
Quarter: 2005Q4

REPORT INFORMATION
  Report Type: 
  Country: None (occurrence: None)
  Receive Date: 20051202
  Receipt Date: 20051011
  Transmission Date: 20060501
  Serious: Yes (Hospitalization)
  Sender: FDA-Public Use
  Company Number: 163-20785-05100159

PATIENT
  Age: 57 Year
  Sex: Female
  Weight: 77 kg

DRUGS (10)
  1. THALOMID [Suspect]
     Indication: MULTIPLE MYELOMA
     Dosage: 200 MG, DAILY, ORAL
     Route: 048
     Dates: start: 20050703, end: 20050706
  2. BORTEZOMIB (BORTEZOMIB) [Suspect]
     Indication: MULTIPLE MYELOMA
     Dosage: 1.6 MG, DAILY
     Dates: start: 20050630, end: 20050630
  3. BORTEZOMIB (BORTEZOMIB) [Suspect]
     Indication: MULTIPLE MYELOMA
     Dosage: 1.6 MG, DAILY
     Dates: start: 20050703, end: 20050703
  4. BORTEZOMIB (BORTEZOMIB) [Suspect]
     Indication: MULTIPLE MYELOMA
     Dosage: 1.6 MG, DAILY
     Dates: start: 20050707, end: 20050707
  5. BORTEZOMIB (BORTEZOMIB) [Suspect]
     Indication: MULTIPLE MYELOMA
     Dosage: 1.6 MG, DAILY
     Dates: start: 20050710, end: 20050710
  6. DEXAMETHASONE [Suspect]
     Indication: MULTIPLE MYELOMA
     Dosage: 40 MG, DAILY
     Dates: start: 20050703, end: 20050706
  7. CISPLATIN [Suspect]
     Indication: MULTIPLE MYELOMA
     Dosage: 16 MG, DAILY
     Dates: start: 20050703, end: 20050706
  8. ADRIAMYCIN PFS [Suspect]
     Indication: MULTIPLE MYELOMA
     Dosage: 16 MG, DAILY
     Dates: start: 20050703, end: 20050706
  9. CYCLOPHOSPHAMIDE [Suspect]
     Indication: MULTIPLE MYELOMA
     Dosage: 644 MG, DAILY
     Dates: start: 20050703, end: 20050706
  10. ETOPOSIDE [Suspect]
     Indication: MULTIPLE MYELOMA
     Dosage: 64 MG, DAILY
     Dates: start: 20050703, end: 20050706

REACTIONS (4)
  - ATELECTASIS [None]
  - FEBRILE NEUTROPENIA [None]
  - LUNG INFECTION [None]
  - STAPHYLOCOCCAL BACTERAEMIA [None]
